FAERS Safety Report 8965112 (Version 1)
Quarter: 2012Q4

REPORT INFORMATION
  Report Type: 
  Country: US (occurrence: US)
  Receive Date: 20121214
  Receipt Date: 20121214
  Transmission Date: 20130627
  Serious: Yes (Life-Threatening, Other)
  Sender: FDA-Public Use
  Company Number: US-ROCHE-1155203

PATIENT
  Age: 57 Year
  Sex: Female
  Weight: 77.18 kg

DRUGS (26)
  1. ACTEMRA [Suspect]
     Indication: RHEUMATOID ARTHRITIS
     Route: 042
     Dates: start: 20120509, end: 20120905
  2. PREDNISONE [Suspect]
     Indication: RHEUMATOID ARTHRITIS
     Route: 048
  3. LEFLUNOMIDE [Suspect]
     Indication: RHEUMATOID ARTHRITIS
     Route: 048
     Dates: start: 20100420, end: 20121013
  4. OPANA ER [Concomitant]
     Route: 065
  5. MONTELUKAST [Concomitant]
     Route: 065
  6. CYCLOBENZAPRINE [Concomitant]
     Route: 065
  7. OXYCODONE [Concomitant]
     Route: 065
  8. SULINDAC [Concomitant]
     Route: 065
  9. PRISTIQ [Concomitant]
     Route: 065
  10. ABILIFY [Concomitant]
     Route: 065
  11. TRIAMTERENE/HYDROCHLOROTHIAZIDE [Concomitant]
     Dosage: 37.5/25 mg
     Route: 065
  12. NERIUM OLEANDER [Concomitant]
     Route: 065
  13. GABAPENTIN [Concomitant]
     Route: 065
  14. VALACYCLOVIR [Concomitant]
     Route: 065
  15. FOLIC ACID [Concomitant]
     Route: 065
  16. CRESTOR [Concomitant]
     Route: 065
  17. MVI [Concomitant]
  18. CLOBETASOL [Concomitant]
  19. METROGEL [Concomitant]
  20. RECLAST [Concomitant]
     Route: 065
  21. FISH OIL [Concomitant]
  22. FEXOFENADIN [Concomitant]
     Route: 065
  23. PEPCID [Concomitant]
  24. ZYRLEX [Concomitant]
     Route: 065
  25. BENADRYL [Concomitant]
     Route: 065
  26. TYLENOL [Concomitant]
     Route: 065

REACTIONS (7)
  - Pneumonia [Recovering/Resolving]
  - Abdominal sepsis [Recovering/Resolving]
  - Intestinal ischaemia [Recovering/Resolving]
  - Respiratory failure [Recovering/Resolving]
  - Renal injury [Unknown]
  - Rhabdomyolysis [Unknown]
  - Pulmonary embolism [Unknown]
